FAERS Safety Report 17443227 (Version 3)
Quarter: 2020Q2

REPORT INFORMATION
  Report Type: Spontaneous
  Country: US (occurrence: US)
  Receive Date: 20200221
  Receipt Date: 20200422
  Transmission Date: 20200713
  Serious: Yes (Hospitalization, Other)
  Sender: FDA-Public Use
  Company Number: US-DRREDDYS-USA/USA/20/0119949

PATIENT
  Age: 63 Year
  Sex: Female
  Weight: 53.1 kg

DRUGS (1)
  1. HEPARIN SODIUM. [Suspect]
     Active Substance: HEPARIN SODIUM
     Indication: THROMBOSIS PROPHYLAXIS
     Route: 058

REACTIONS (5)
  - Venous thrombosis [Unknown]
  - Adrenal haemorrhage [Recovered/Resolved with Sequelae]
  - Heparin-induced thrombocytopenia [Recovered/Resolved with Sequelae]
  - Adrenomegaly [Unknown]
  - Adrenal insufficiency [Unknown]
